FAERS Safety Report 10100651 (Version 1)
Quarter: 2014Q2

REPORT INFORMATION
  Report Type: Spontaneous
  Country: UA (occurrence: UA)
  Receive Date: 20140423
  Receipt Date: 20140423
  Transmission Date: 20141212
  Serious: Yes (Hospitalization)
  Sender: FDA-Public Use
  Company Number: UA-ABBVIE-14P-269-1229086-00

PATIENT
  Age: 28 Year
  Sex: Female

DRUGS (3)
  1. KLACID SR [Suspect]
     Indication: TONSILLITIS
     Route: 048
     Dates: start: 20140320, end: 20140325
  2. KLACID SR [Suspect]
     Indication: LYMPHADENITIS
  3. PROBIOTIC [Concomitant]
     Indication: PRODUCT USED FOR UNKNOWN INDICATION

REACTIONS (1)
  - Peritonsillar abscess [Recovered/Resolved]
